FAERS Safety Report 19143708 (Version 1)
Quarter: 2021Q2

REPORT INFORMATION
  Report Type: Spontaneous
  Country: CA (occurrence: CA)
  Receive Date: 20210416
  Receipt Date: 20210416
  Transmission Date: 20210717
  Serious: Yes (Hospitalization, Other)
  Sender: FDA-Public Use
  Company Number: CA-TEVA-2021-CA-1900823

PATIENT
  Age: 35 Year
  Sex: Male

DRUGS (38)
  1. ZOPICLONE [Interacting]
     Active Substance: ZOPICLONE
     Indication: POOR QUALITY SLEEP
     Route: 065
  2. OXAZEPAM. [Interacting]
     Active Substance: OXAZEPAM
     Route: 065
  3. LORAZEPAM. [Concomitant]
     Active Substance: LORAZEPAM
     Indication: BIPOLAR DISORDER
     Route: 065
  4. CLONAZEPAM. [Suspect]
     Active Substance: CLONAZEPAM
     Indication: PSYCHOTIC DISORDER
     Route: 065
  5. ZOPICLONE [Interacting]
     Active Substance: ZOPICLONE
     Route: 065
  6. QUETIAPINE. [Interacting]
     Active Substance: QUETIAPINE
     Indication: BIPOLAR DISORDER
     Route: 048
  7. TEMAZEPAM. [Interacting]
     Active Substance: TEMAZEPAM
     Route: 065
  8. ABILIFY [Interacting]
     Active Substance: ARIPIPRAZOLE
     Indication: BIPOLAR DISORDER
     Dosage: 10 MILLIGRAM DAILY;
     Route: 048
  9. ABILIFY [Interacting]
     Active Substance: ARIPIPRAZOLE
     Dosage: 10 MILLIGRAM DAILY;
     Route: 048
  10. VORTIOXETINE. [Concomitant]
     Active Substance: VORTIOXETINE
     Indication: ANTIDEPRESSANT THERAPY
     Dosage: 10 MILLIGRAM DAILY;
     Route: 048
  11. CLONAZEPAM. [Interacting]
     Active Substance: CLONAZEPAM
     Route: 065
  12. TEMAZEPAM. [Interacting]
     Active Substance: TEMAZEPAM
     Indication: POOR QUALITY SLEEP
     Route: 065
  13. TEMAZEPAM. [Interacting]
     Active Substance: TEMAZEPAM
     Indication: BIPOLAR DISORDER
     Route: 065
  14. TEMAZEPAM. [Interacting]
     Active Substance: TEMAZEPAM
     Route: 065
  15. ABILIFY [Interacting]
     Active Substance: ARIPIPRAZOLE
     Route: 030
  16. BENZTROPINE MESYLATE. [Concomitant]
     Active Substance: BENZTROPINE MESYLATE
     Indication: DYSTONIC TREMOR
     Route: 065
  17. QUETIAPINE. [Interacting]
     Active Substance: QUETIAPINE
     Indication: PSYCHOTIC DISORDER
     Route: 048
  18. OXAZEPAM. [Interacting]
     Active Substance: OXAZEPAM
     Route: 065
  19. LITHIUM. [Interacting]
     Active Substance: LITHIUM
     Indication: BIPOLAR DISORDER
     Route: 048
  20. LITHIUM. [Interacting]
     Active Substance: LITHIUM
     Indication: AFFECTIVE DISORDER
     Route: 048
  21. ABILIFY [Interacting]
     Active Substance: ARIPIPRAZOLE
     Route: 065
  22. ABILIFY [Interacting]
     Active Substance: ARIPIPRAZOLE
     Route: 030
  23. CLONAZEPAM. [Interacting]
     Active Substance: CLONAZEPAM
     Route: 065
  24. ZOPICLONE [Interacting]
     Active Substance: ZOPICLONE
     Indication: BIPOLAR DISORDER
     Route: 065
  25. ZOPICLONE [Interacting]
     Active Substance: ZOPICLONE
     Route: 065
  26. QUETIAPINE. [Interacting]
     Active Substance: QUETIAPINE
     Route: 048
  27. QUETIAPINE. [Interacting]
     Active Substance: QUETIAPINE
     Route: 048
  28. OXAZEPAM. [Interacting]
     Active Substance: OXAZEPAM
     Indication: POOR QUALITY SLEEP
     Route: 065
  29. CLONAZEPAM. [Interacting]
     Active Substance: CLONAZEPAM
     Indication: BIPOLAR DISORDER
     Route: 065
  30. CLONAZEPAM. [Interacting]
     Active Substance: CLONAZEPAM
     Route: 065
  31. OXAZEPAM. [Interacting]
     Active Substance: OXAZEPAM
     Indication: BIPOLAR DISORDER
     Route: 065
  32. NOZINAN [Interacting]
     Active Substance: LEVOMEPROMAZINE
     Indication: BIPOLAR DISORDER
     Route: 065
  33. ABILIFY [Interacting]
     Active Substance: ARIPIPRAZOLE
     Route: 065
  34. ABILIFY [Interacting]
     Active Substance: ARIPIPRAZOLE
     Route: 065
  35. CLONAZEPAM. [Interacting]
     Active Substance: CLONAZEPAM
     Route: 065
  36. NOZINAN [Interacting]
     Active Substance: LEVOMEPROMAZINE
     Indication: POOR QUALITY SLEEP
     Route: 065
  37. ABILIFY [Interacting]
     Active Substance: ARIPIPRAZOLE
     Indication: PSYCHOTIC DISORDER
     Route: 065
  38. SERTRALINE [Concomitant]
     Active Substance: SERTRALINE HYDROCHLORIDE
     Indication: BIPOLAR DISORDER
     Route: 065

REACTIONS (9)
  - Dystonia [Unknown]
  - Muscle contracture [Unknown]
  - Drug interaction [Unknown]
  - Product use in unapproved indication [Unknown]
  - Musculoskeletal stiffness [Unknown]
  - Tremor [Unknown]
  - Dystonic tremor [Unknown]
  - Restlessness [Unknown]
  - Drug ineffective [Unknown]
